FAERS Safety Report 14015565 (Version 8)
Quarter: 2021Q2

REPORT INFORMATION
  Report Type: Spontaneous
  Country: JP (occurrence: JP)
  Receive Date: 20170927
  Receipt Date: 20210617
  Transmission Date: 20210716
  Serious: Yes (Death, Hospitalization, Other)
  Sender: FDA-Public Use
  Company Number: JP-UNITED THERAPEUTICS-UNT-2017-007711

PATIENT
  Age: 65 Year
  Sex: Female
  Weight: 42.3 kg

DRUGS (21)
  1. PIMOBENDAN [Suspect]
     Active Substance: PIMOBENDAN
     Indication: CARDIAC FAILURE
     Dosage: UNK
     Route: 048
     Dates: start: 20170921, end: 20171018
  2. FUROSEMIDE. [Concomitant]
     Active Substance: FUROSEMIDE
     Indication: PRODUCT USED FOR UNKNOWN INDICATION
     Dosage: UNK
     Route: 048
  3. RIZE [CLOTIAZEPAM] [Concomitant]
     Active Substance: CLOTIAZEPAM
     Indication: PRODUCT USED FOR UNKNOWN INDICATION
     Dosage: UNK
     Route: 048
  4. ACETAMINOPHEN. [Concomitant]
     Active Substance: ACETAMINOPHEN
     Dosage: UNK, PRN
     Route: 048
     Dates: start: 20170924
  5. ALDACTONE A [Concomitant]
     Active Substance: SPIRONOLACTONE
     Indication: PRODUCT USED FOR UNKNOWN INDICATION
     Dosage: UNK
     Route: 048
     Dates: start: 20170801
  6. REMODULIN [Suspect]
     Active Substance: TREPROSTINIL
     Dosage: 12 MCL/HR, CONTINUING
     Route: 058
     Dates: start: 2017, end: 2017
  7. REMODULIN [Suspect]
     Active Substance: TREPROSTINIL
     Dosage: 0.0046 ?G/KG, CONTINUING
     Route: 058
     Dates: start: 2017, end: 20171218
  8. DOBUTAMINE [Concomitant]
     Active Substance: DOBUTAMINE HYDROCHLORIDE
     Indication: CARDIAC FAILURE
     Dosage: UNK
     Route: 041
     Dates: start: 2017, end: 201709
  9. XARELTO [Concomitant]
     Active Substance: RIVAROXABAN
     Indication: PRODUCT USED FOR UNKNOWN INDICATION
     Dosage: UNK
     Route: 048
  10. TRAMCET [Concomitant]
     Active Substance: ACETAMINOPHEN\TRAMADOL
     Indication: PROPHYLAXIS
     Dosage: UNK, PRN
     Route: 048
     Dates: start: 20170424
  11. ACETAMINOPHEN. [Concomitant]
     Active Substance: ACETAMINOPHEN
     Indication: PROPHYLAXIS
     Dosage: UNK, PRN
     Route: 048
     Dates: start: 20170424, end: 20170703
  12. LAC?B [Concomitant]
     Active Substance: BIFIDOBACTERIUM SPP.
     Indication: PROPHYLAXIS
     Dosage: UNK
     Route: 048
     Dates: start: 20170630
  13. REMODULIN [Suspect]
     Active Substance: TREPROSTINIL
     Indication: PORTOPULMONARY HYPERTENSION
     Dosage: UNK UNK, CONTINUING
     Route: 058
     Dates: start: 20170424, end: 2017
  14. K?SUPPLY [Concomitant]
     Active Substance: POTASSIUM CHLORIDE
     Indication: PRODUCT USED FOR UNKNOWN INDICATION
     Dosage: UNK
     Route: 048
     Dates: end: 20170806
  15. SAMSCA [Concomitant]
     Active Substance: TOLVAPTAN
     Indication: PRODUCT USED FOR UNKNOWN INDICATION
     Dosage: UNK
     Route: 048
     Dates: start: 20170515, end: 20170731
  16. REMODULIN [Suspect]
     Active Substance: TREPROSTINIL
     Indication: PULMONARY ARTERIAL HYPERTENSION
     Dosage: 1.5 MCL/HR, CONTINUING
     Route: 058
     Dates: start: 2017, end: 2017
  17. REMODULIN [Suspect]
     Active Substance: TREPROSTINIL
     Dosage: 0.0028 ?G/KG, CONTINUING
     Route: 058
     Dates: start: 2017, end: 2017
  18. REMODULIN [Suspect]
     Active Substance: TREPROSTINIL
     Dosage: 0.0019 ?G/KG, CONTINUING
     Route: 058
     Dates: start: 2017, end: 2017
  19. REMODULIN [Suspect]
     Active Substance: TREPROSTINIL
     Dosage: 7.5 MCL/HR, CONTINUING
     Route: 058
     Dates: start: 2017, end: 2017
  20. AMBROXOL HYDROCHLORIDE [Concomitant]
     Active Substance: AMBROXOL HYDROCHLORIDE
     Indication: PROPHYLAXIS
     Dosage: UNK
     Route: 048
  21. REMODULIN [Suspect]
     Active Substance: TREPROSTINIL
     Dosage: 10 MCL/HR, CONTINUING
     Route: 058
     Dates: start: 2017, end: 2017

REACTIONS (11)
  - Syncope [Recovered/Resolved]
  - Right ventricular failure [Fatal]
  - Cardiovascular insufficiency [Not Recovered/Not Resolved]
  - Peripheral venous disease [Unknown]
  - Device occlusion [Unknown]
  - Pulmonary hypertension [Fatal]
  - Injection site pain [Unknown]
  - Headache [Recovering/Resolving]
  - Dehydration [Recovered/Resolved]
  - Decreased appetite [Recovered/Resolved]
  - Malaise [Recovering/Resolving]

NARRATIVE: CASE EVENT DATE: 2017
